FAERS Safety Report 15664679 (Version 1)
Quarter: 2018Q4

REPORT INFORMATION
  Report Type: Spontaneous
  Country: FR (occurrence: FR)
  Receive Date: 20181128
  Receipt Date: 20181128
  Transmission Date: 20190205
  Serious: Yes (Life-Threatening, Hospitalization)
  Sender: FDA-Public Use
  Company Number: FR-ACCORD-094016

PATIENT
  Age: 70 Year
  Sex: Male
  Weight: 80 kg

DRUGS (9)
  1. FLECAINIDE [Concomitant]
     Active Substance: FLECAINIDE
  2. SERESTA [Concomitant]
     Active Substance: OXAZEPAM
  3. RAMIPRIL. [Suspect]
     Active Substance: RAMIPRIL
     Indication: HYPERTENSION
     Route: 048
  4. TEGELINE [Suspect]
     Active Substance: HUMAN IMMUNOGLOBULIN G
     Indication: QUADRIPARESIS
     Route: 042
     Dates: start: 20171106, end: 20171110
  5. DEPAKOTE [Concomitant]
     Active Substance: DIVALPROEX SODIUM
  6. SERTRALINE [Concomitant]
     Active Substance: SERTRALINE HYDROCHLORIDE
  7. IPERTEN [Concomitant]
     Active Substance: MANIDIPINE
  8. PANTOPRAZOLE [Concomitant]
     Active Substance: PANTOPRAZOLE
  9. PRADAXA [Concomitant]
     Active Substance: DABIGATRAN ETEXILATE MESYLATE

REACTIONS (2)
  - Renal tubular necrosis [Recovered/Resolved]
  - Acute kidney injury [Recovered/Resolved]

NARRATIVE: CASE EVENT DATE: 20171116
